FAERS Safety Report 8335831-9 (Version None)
Quarter: 2012Q2

REPORT INFORMATION
  Report Type: 
  Country: None (occurrence: None)
  Receive Date: 20120504
  Receipt Date: 20110121
  Transmission Date: 20120825
  Serious: Yes (Hospitalization, Other)
  Sender: FDA-Public Use
  Company Number: US-BAYER-201013561NA

PATIENT
  Age: 29 Year
  Sex: Female
  Weight: 114 kg

DRUGS (17)
  1. VITAMIN TAB [Concomitant]
  2. MUCINEX [Concomitant]
     Dosage: UNK UNK, QD
  3. MULTI-VITAMINS [Concomitant]
  4. NAPROXEN [Concomitant]
     Dosage: 500 MG, PRN
     Dates: start: 19990101, end: 20070101
  5. WELLBUTRIN XL [Concomitant]
     Indication: DEPRESSION
     Dosage: 300 MG, QD
     Route: 048
  6. ALBUTEROL [Concomitant]
     Dosage: 2 PUFF(S), PRN
  7. LOVAZA [Concomitant]
     Dosage: 1000 MG, QD
  8. YAZ [Suspect]
     Indication: ACNE
     Dosage: UNK UNK, QD
     Route: 048
     Dates: start: 20070701, end: 20080101
  9. YAZ [Suspect]
     Indication: PREMENSTRUAL SYNDROME
  10. IBUPROFEN [Concomitant]
     Dosage: UNK UNK, PRN
  11. EFFEXOR XR [Concomitant]
     Indication: DEPRESSION
     Dosage: 150 MG, QD
     Route: 048
  12. ATROVENT [Concomitant]
     Dosage: UNK UNK, BID
     Route: 045
  13. EFFEXOR [Concomitant]
  14. ADVAIR DISKUS 100/50 [Concomitant]
     Dosage: UNK UNK, BID
  15. BENTYL [Concomitant]
     Dosage: UNK
     Dates: start: 20071018
  16. WELLBUTRIN [Concomitant]
  17. VICODIN [Concomitant]
     Dosage: UNK
     Dates: start: 20071018

REACTIONS (6)
  - CHOLECYSTECTOMY [None]
  - CHOLECYSTITIS CHRONIC [None]
  - PULMONARY EMBOLISM [None]
  - CHOLESTEROSIS [None]
  - CHOLELITHIASIS [None]
  - ABDOMINAL PAIN UPPER [None]
